FAERS Safety Report 9924828 (Version 1)
Quarter: 2014Q1

REPORT INFORMATION
  Report Type: Spontaneous
  Country: US (occurrence: None)
  Receive Date: 20140224
  Receipt Date: 20140224
  Transmission Date: 20141002
  Serious: Yes (Disabling)
  Sender: FDA-Public Use
  Company Number: None

PATIENT
  Age: 42 Year
  Sex: Female
  Weight: 56.7 kg

DRUGS (1)
  1. LEVAQUIN [Suspect]
     Indication: BRONCHITIS
     Dosage: ONCE DAILY
     Route: 048
     Dates: start: 20131121, end: 20131130

REACTIONS (4)
  - Vertigo [None]
  - Muscular weakness [None]
  - Fatigue [None]
  - Vibratory sense increased [None]
